FAERS Safety Report 8816581 (Version 1)
Quarter: 2012Q4

REPORT INFORMATION
  Report Type: Spontaneous
  Country: US (occurrence: None)
  Receive Date: 20121001
  Receipt Date: 20121001
  Transmission Date: 20130627
  Serious: Yes (Hospitalization)
  Sender: FDA-Public Use
  Company Number: None

PATIENT
  Sex: Female
  Weight: 80.7 kg

DRUGS (2)
  1. CYCLOPHOSPHAMIDE [Suspect]
     Dates: end: 20120919
  2. DOXORUBICIN HYDROCHLORIDE [Suspect]
     Dates: end: 20120919

REACTIONS (3)
  - Febrile neutropenia [None]
  - Chest pain [None]
  - Dyspnoea [None]
